FAERS Safety Report 8718869 (Version 2)
Quarter: 2013Q2

REPORT INFORMATION
  Report Type: Spontaneous
  Country: US (occurrence: US)
  Receive Date: 20120810
  Receipt Date: 20130527
  Transmission Date: 20140414
  Serious: No
  Sender: FDA-Public Use
  Company Number: US-009507513-1207USA013123

PATIENT
  Age: 82 Year
  Sex: Female

DRUGS (7)
  1. SINGULAIR [Suspect]
     Indication: ASTHMA
     Dosage: UNK
     Route: 048
     Dates: start: 20120625
  2. SINGULAIR [Suspect]
     Indication: HYPERSENSITIVITY
  3. PULMICORT [Concomitant]
  4. ATENOLOL [Concomitant]
  5. LOSARTAN POTASSIUM [Concomitant]
  6. NEXIUM [Concomitant]
     Indication: HYPERSENSITIVITY
     Route: 048
  7. GLIMEPIRIDE [Concomitant]
     Indication: ASTHMA

REACTIONS (1)
  - Abdominal discomfort [Not Recovered/Not Resolved]
